FAERS Safety Report 5757700-0 (Version None)
Quarter: 2008Q2

REPORT INFORMATION
  Report Type: 
  Country: None (occurrence: None)
  Receive Date: 20080529
  Receipt Date: 20080521
  Transmission Date: 20081010
  Serious: Yes (Other)
  Sender: FDA-Public Use
  Company Number: 2008013447

PATIENT
  Age: 68 Year
  Sex: Female

DRUGS (3)
  1. CETIRIZINE HCL [Suspect]
     Dosage: 10 MG ONCE, ORAL
     Route: 048
  2. FELODIPINE [Suspect]
     Dosage: 5 MG DAILY, ORAL
     Route: 048
  3. ACETAMINOPHEN [Concomitant]

REACTIONS (1)
  - PALPITATIONS [None]
